FAERS Safety Report 10186369 (Version 1)
Quarter: 2014Q2

REPORT INFORMATION
  Report Type: Spontaneous
  Country: US (occurrence: US)
  Receive Date: 20140521
  Receipt Date: 20140521
  Transmission Date: 20141212
  Serious: No
  Sender: FDA-Public Use
  Company Number: US-ASTRAZENECA-2013SE51448

PATIENT
  Age: 55 Year
  Sex: Female
  Weight: 63.5 kg

DRUGS (2)
  1. PULMICORT FLEXHALER [Suspect]
     Indication: ASTHMA
     Dosage: 180 MCG TWO INHALATIONS EVERY MORNING
     Route: 055
     Dates: start: 201306, end: 20130706
  2. MONTELUKAST SOD [Concomitant]
     Route: 048
     Dates: start: 201306

REACTIONS (13)
  - Oral mucosal blistering [Unknown]
  - Oral mucosal discolouration [Unknown]
  - Increased upper airway secretion [Unknown]
  - Nasal discharge discolouration [Recovered/Resolved]
  - Tongue dry [Unknown]
  - Dysphagia [Unknown]
  - Upper-airway cough syndrome [Unknown]
  - Neck pain [Recovering/Resolving]
  - Fatigue [Unknown]
  - Dry throat [Unknown]
  - Oropharyngeal pain [Unknown]
  - Mood swings [Unknown]
  - Intentional product misuse [Recovering/Resolving]
